FAERS Safety Report 24778086 (Version 1)
Quarter: 2024Q4

REPORT INFORMATION
  Report Type: Spontaneous
  Country: FR (occurrence: FR)
  Receive Date: 20241226
  Receipt Date: 20241226
  Transmission Date: 20250115
  Serious: Yes (Death, Hospitalization, Other)
  Sender: TAKEDA
  Company Number: None

PATIENT
  Age: 72 Year
  Sex: Male
  Weight: 91 kg

DRUGS (1)
  1. FRUZAQLA [Suspect]
     Active Substance: FRUQUINTINIB
     Indication: Adenocarcinoma of colon
     Dosage: 5 MILLIGRAM, QD
     Dates: start: 202406, end: 202408

REACTIONS (2)
  - Interstitial lung disease [Fatal]
  - Condition aggravated [Fatal]

NARRATIVE: CASE EVENT DATE: 20240801
